FAERS Safety Report 7805184-0 (Version None)
Quarter: 2011Q4

REPORT INFORMATION
  Report Type: 
  Country: None (occurrence: None)
  Receive Date: 20111010
  Receipt Date: 20110823
  Transmission Date: 20120403
  Serious: Yes (Other)
  Sender: FDA-Public Use
  Company Number: US-BAYER-200938968NA

PATIENT
  Age: 67 Year
  Sex: Female
  Weight: 49.887 kg

DRUGS (22)
  1. LASIX [Concomitant]
  2. MUCOMYST [Concomitant]
     Dosage: 600 MG, BID
     Route: 048
     Dates: start: 20050823
  3. VANCOMYCIN [Concomitant]
     Dosage: 1 G, UNK
     Route: 042
     Dates: start: 20050829, end: 20050829
  4. HEPARIN [Concomitant]
     Dosage: 20000 U, UNK
     Route: 042
     Dates: start: 20050829, end: 20050829
  5. PHENYLEPHRINE HCL [Concomitant]
     Dosage: UNK
     Route: 042
     Dates: start: 20050829, end: 20050829
  6. CALCIUM CARBONATE [Concomitant]
     Dosage: 1250 MG, WITH MEALS
     Route: 048
     Dates: start: 20050826
  7. MANNITOL [Concomitant]
     Dosage: 125 MG, UNK
     Route: 042
     Dates: start: 20050829, end: 20050829
  8. TRASYLOL [Suspect]
     Indication: PERICARDIAL OPERATION
     Dosage: 50 CC/HR INFUSION
     Route: 042
     Dates: start: 20050829, end: 20050829
  9. LIDOCAINE [Concomitant]
     Dosage: UNK
     Route: 042
     Dates: start: 20050829, end: 20050829
  10. MIDAZOLAM HCL [Concomitant]
     Dosage: UNK
     Route: 042
     Dates: start: 20050829, end: 20050829
  11. PROPOFOL [Concomitant]
     Dosage: 50 ML/ HR
     Route: 042
     Dates: start: 20050829, end: 20050829
  12. TRASYLOL [Suspect]
     Indication: PERICARDIOTOMY
     Dosage: 200 ML LOADING DOSE
     Route: 042
     Dates: start: 20050829, end: 20050829
  13. PREVACID [Concomitant]
     Dosage: 30 MG, UNK
     Route: 048
     Dates: start: 20050815
  14. PROGRAF [Concomitant]
     Dosage: 1 MG, BID
     Route: 048
     Dates: start: 20050826
  15. PROTAMINE [Concomitant]
     Dosage: 275 MG, UNK
     Route: 042
     Dates: start: 20050829, end: 20050829
  16. TRASYLOL [Suspect]
     Indication: CORONARY ARTERY BYPASS
     Dosage: 200 ML, PUMP PRIME
     Route: 042
     Dates: start: 20050829, end: 20050829
  17. TRASYLOL [Suspect]
     Dosage: 1 ML TEST DOSE
     Route: 042
     Dates: start: 20050829, end: 20050829
  18. FENTANYL [Concomitant]
     Dosage: 125 CC/HR
     Route: 042
     Dates: start: 20050829, end: 20050829
  19. VICODIN [Concomitant]
  20. CALCITRIOL [Concomitant]
     Dosage: 0.25 MCG/24HR, UNK
     Route: 048
     Dates: start: 20050816
  21. AMBIEN [Concomitant]
     Dosage: 5 MG, HS
     Route: 048
     Dates: start: 20050816
  22. CELEXA [Concomitant]
     Dosage: 20 MG, QD
     Route: 048
     Dates: start: 20050816

REACTIONS (11)
  - STRESS [None]
  - RENAL FAILURE [None]
  - PAIN [None]
  - CARDIAC ARREST [None]
  - EMOTIONAL DISTRESS [None]
  - INJURY [None]
  - ANXIETY [None]
  - RENAL IMPAIRMENT [None]
  - UNEVALUABLE EVENT [None]
  - RENAL INJURY [None]
  - FEAR [None]
